FAERS Safety Report 8259667-2 (Version None)
Quarter: 2012Q2

REPORT INFORMATION
  Report Type: 
  Country: None (occurrence: None)
  Receive Date: 20120403
  Receipt Date: 20120103
  Transmission Date: 20120825
  Serious: No
  Sender: FDA-Public Use
  Company Number: DL2012-0006

PATIENT
  Age: 22 Year
  Sex: Female

DRUGS (3)
  1. MIFEPRISTONE (MIFEPREX) [Suspect]
     Indication: ABORTION INDUCED
     Dosage: 200 MG, ORAL
     Route: 048
     Dates: start: 20111118
  2. PLAN B ONE-STEP [Suspect]
     Dosage: 1.5 MG; 1.5 MG
  3. PLAN B ONE-STEP [Concomitant]

REACTIONS (3)
  - MUSCLE SPASMS [None]
  - BREAST TENDERNESS [None]
  - HOT FLUSH [None]
